FAERS Safety Report 6767543-7 (Version None)
Quarter: 2010Q2

REPORT INFORMATION
  Report Type: 
  Country: None (occurrence: None)
  Receive Date: 20100614
  Receipt Date: 20100605
  Transmission Date: 20101027
  Serious: Yes (Death)
  Sender: FDA-Public Use
  Company Number: PHHY2010MX36806

PATIENT
  Sex: Female

DRUGS (1)
  1. DIOVAN HCT [Suspect]
     Indication: HYPERTENSION
     Dosage: 1TABLET (160/25 MG) PER DAY
     Dates: start: 20100527

REACTIONS (3)
  - HIP SURGERY [None]
  - PULMONARY EMBOLISM [None]
  - RESPIRATORY ARREST [None]
